FAERS Safety Report 5821232-1 (Version None)
Quarter: 2008Q3

REPORT INFORMATION
  Report Type: 
  Country: None (occurrence: None)
  Receive Date: 20080724
  Receipt Date: 20080711
  Transmission Date: 20090109
  Serious: Yes (Other)
  Sender: FDA-Public Use
  Company Number: ZA-ASTRAZENECA-2007SE05295

PATIENT
  Sex: Female

DRUGS (3)
  1. ARIMIDEX [Suspect]
     Route: 048
  2. IRON SUPPLEMENTS [Concomitant]
  3. FOLIC ACID SUPPLEMENTS [Concomitant]

REACTIONS (1)
  - THROMBOCYTOPENIA [None]
